FAERS Safety Report 11192012 (Version 1)
Quarter: 2015Q2

REPORT INFORMATION
  Report Type: Report from Study
  Country: US (occurrence: US)
  Receive Date: 20150616
  Receipt Date: 20150616
  Transmission Date: 20150821
  Serious: Yes (Other)
  Sender: FDA-Public Use
  Company Number: US-JNJFOC-20150606084

PATIENT
  Age: 43 Year
  Sex: Female
  Weight: 57.15 kg

DRUGS (2)
  1. REMICADE [Suspect]
     Active Substance: INFLIXIMAB
     Indication: COLITIS ULCERATIVE
     Route: 042
     Dates: start: 2012, end: 20150306
  2. ASACOL [Concomitant]
     Active Substance: MESALAMINE
     Indication: COLITIS ULCERATIVE
     Route: 048

REACTIONS (5)
  - Mycobacterium avium complex infection [Not Recovered/Not Resolved]
  - Ligament rupture [Recovered/Resolved]
  - Joint dislocation [Recovered/Resolved]
  - Bronchiectasis [Not Recovered/Not Resolved]
  - Fall [Recovered/Resolved]

NARRATIVE: CASE EVENT DATE: 201301
